FAERS Safety Report 6703062-1 (Version None)
Quarter: 2010Q2

REPORT INFORMATION
  Report Type: 
  Country: None (occurrence: None)
  Receive Date: 20100427
  Receipt Date: 20100419
  Transmission Date: 20101027
  Serious: Yes (Hospitalization, Disabling, Other)
  Sender: FDA-Public Use
  Company Number: 2010SP022372

PATIENT
  Age: 46 Year
  Sex: Male
  Weight: 71 kg

DRUGS (2)
  1. PEG-INTRON [Suspect]
     Indication: HEPATITIS C
     Dosage: 0.5 MCG/KG; QW; SC
     Route: 058
     Dates: start: 20091026, end: 20100413
  2. RIBAVIRIN [Suspect]
     Indication: HEPATITIS C
     Dosage: ;PO
     Route: 048
     Dates: start: 20091026, end: 20100418

REACTIONS (2)
  - BRONCHIAL CARCINOMA [None]
  - CHEST PAIN [None]
